FAERS Safety Report 17362957 (Version 1)
Quarter: 2020Q1

REPORT INFORMATION
  Report Type: Spontaneous
  Country: SE (occurrence: SE)
  Receive Date: 20200203
  Receipt Date: 20200203
  Transmission Date: 20200409
  Serious: Yes (Hospitalization)
  Sender: FDA-Public Use
  Company Number: SE-MYLANLABS-2020M1011457

PATIENT
  Age: 36 Year
  Sex: Female

DRUGS (1)
  1. OLANZAPINE. [Suspect]
     Active Substance: OLANZAPINE
     Indication: PRODUCT USED FOR UNKNOWN INDICATION
     Dosage: UNK
     Route: 048
     Dates: start: 20181003, end: 20181003

REACTIONS (8)
  - Muscle spasms [Unknown]
  - Lethargy [Unknown]
  - Depressed level of consciousness [Unknown]
  - Fatigue [Unknown]
  - Intentional self-injury [Unknown]
  - Intentional overdose [Unknown]
  - Electrocardiogram QRS complex prolonged [Unknown]
  - Somnolence [Unknown]

NARRATIVE: CASE EVENT DATE: 20181003
